FAERS Safety Report 19410071 (Version 1)
Quarter: 2021Q2

REPORT INFORMATION
  Report Type: Other
  Country: ZA (occurrence: ZA)
  Receive Date: 20210614
  Receipt Date: 20210614
  Transmission Date: 20210717
  Serious: Yes (Other)
  Sender: FDA-Public Use
  Company Number: ZA-ROCHE-2847255

PATIENT
  Age: 85 Year
  Sex: Male

DRUGS (2)
  1. LUCENTIS [Suspect]
     Active Substance: RANIBIZUMAB
     Indication: NEOVASCULAR AGE-RELATED MACULAR DEGENERATION
     Route: 047
     Dates: start: 20210209
  2. LUCENTIS [Suspect]
     Active Substance: RANIBIZUMAB
     Route: 047
     Dates: start: 20210209

REACTIONS (4)
  - Subretinal fluid [Unknown]
  - Macular oedema [Unknown]
  - Neovascularisation [Unknown]
  - Retinal oedema [Unknown]

NARRATIVE: CASE EVENT DATE: 20210421
